FAERS Safety Report 15352146 (Version 2)
Quarter: 2019Q1

REPORT INFORMATION
  Report Type: Spontaneous
  Country: US (occurrence: US)
  Receive Date: 20180905
  Receipt Date: 20190228
  Transmission Date: 20190417
  Serious: Yes (Other)
  Sender: FDA-Public Use
  Company Number: US-3M-2018-US-014719

PATIENT
  Age: 68 Year
  Sex: Male
  Weight: 68.95 kg

DRUGS (1)
  1. CHLORHEXIDINE GLUCONATE (NON-SPECIFIC) [Suspect]
     Active Substance: CHLORHEXIDINE GLUCONATE
     Indication: PRODUCT USED FOR UNKNOWN INDICATION
     Route: 048
     Dates: start: 20180616, end: 20180701

REACTIONS (5)
  - Dysgeusia [Recovering/Resolving]
  - Suicidal ideation [Unknown]
  - Hypoaesthesia [Recovering/Resolving]
  - Paraesthesia [Recovering/Resolving]
  - Burning sensation [Unknown]

NARRATIVE: CASE EVENT DATE: 20180616
